FAERS Safety Report 8032529-1 (Version None)
Quarter: 2011Q4

REPORT INFORMATION
  Report Type: 
  Country: None (occurrence: None)
  Receive Date: 20111202
  Receipt Date: 20101001
  Transmission Date: 20120403
  Serious: Yes (Hospitalization)
  Sender: FDA-Public Use
  Company Number: 2010SP052614

PATIENT
  Age: 24 Year
  Sex: Female
  Weight: 104.3273 kg

DRUGS (1)
  1. NUVARING [Suspect]
     Indication: CONTRACEPTION
     Dates: start: 20071201, end: 20081001

REACTIONS (4)
  - CHEST PAIN [None]
  - LUNG INFILTRATION [None]
  - PULMONARY EMBOLISM [None]
  - PULMONARY INFARCTION [None]
